FAERS Safety Report 15674285 (Version 4)
Quarter: 2019Q2

REPORT INFORMATION
  Report Type: Report from Study
  Country: IN (occurrence: IN)
  Receive Date: 20181130
  Receipt Date: 20190513
  Transmission Date: 20190711
  Serious: Yes (Death, Other)
  Sender: FDA-Public Use
  Company Number: IN-BRISTOL-MYERS SQUIBB COMPANY-BMS-2018-109159

PATIENT
  Age: 39 Year
  Sex: Male

DRUGS (1)
  1. NIVOLUMAB [Suspect]
     Active Substance: NIVOLUMAB
     Indication: NEOPLASM MALIGNANT
     Dosage: 162 MG, UNK
     Route: 042
     Dates: start: 20181113

REACTIONS (2)
  - Acute respiratory distress syndrome [Fatal]
  - Pneumonitis [Fatal]

NARRATIVE: CASE EVENT DATE: 20181117
